FAERS Safety Report 5446983-2 (Version None)
Quarter: 2007Q3

REPORT INFORMATION
  Report Type: 
  Country: None (occurrence: None)
  Receive Date: 20070803
  Receipt Date: 20070530
  Transmission Date: 20080115
  Serious: Yes (Other)
  Sender: FDA-Public Use
  Company Number: US-JNJFOC-20070600038

PATIENT
  Sex: Female

DRUGS (1)
  1. EXTRA STRENGTH TYLENOL [Suspect]
     Indication: SUICIDE ATTEMPT
     Dosage: 25000 MG, 1 IN 1 TOTAL;
     Dates: start: 20070529, end: 20070529

REACTIONS (2)
  - INTENTIONAL OVERDOSE [None]
  - VOMITING [None]
